FAERS Safety Report 7125844-7 (Version None)
Quarter: 2010Q4

REPORT INFORMATION
  Report Type: 
  Country: None (occurrence: None)
  Receive Date: 20101129
  Receipt Date: 20100630
  Transmission Date: 20110411
  Serious: No
  Sender: FDA-Public Use
  Company Number: US-MYLANLABS-2010S1011753

PATIENT
  Age: 69 Year
  Sex: Female

DRUGS (6)
  1. CLONAZEPAM [Suspect]
     Indication: NIGHTMARE
     Route: 048
     Dates: start: 20100615, end: 20100601
  2. CLONAZEPAM [Suspect]
     Route: 048
     Dates: start: 20100601
  3. CYMBALTA [Concomitant]
  4. WELLBUTRIN [Concomitant]
  5. HYZAAR [Concomitant]
     Indication: BLOOD PRESSURE
  6. LEVOTHYROXINE SODIUM [Concomitant]
     Indication: THYROID DISORDER

REACTIONS (2)
  - DIZZINESS [None]
  - SOMNOLENCE [None]
